FAERS Safety Report 19362946 (Version 4)
Quarter: 2022Q3

REPORT INFORMATION
  Report Type: Report from Study
  Country: BG (occurrence: BG)
  Receive Date: 20210603
  Receipt Date: 20220713
  Transmission Date: 20221027
  Serious: Yes (Hospitalization, Other)
  Sender: FDA-Public Use
  Company Number: BG-CELLTRION INC.-2021BG007332

PATIENT

DRUGS (7)
  1. TRASTUZUMAB [Suspect]
     Active Substance: TRASTUZUMAB
     Indication: HER2 positive breast cancer
     Dosage: 450 MG, EVERY 3 WEEKS (MOST RECENT DOSE PRIOR TO THE EVENT: 29/NOV/2018)
     Dates: start: 20181102
  2. DOCETAXEL [Suspect]
     Active Substance: DOCETAXEL
     Indication: HER2 positive breast cancer
     Dosage: 132.7 MG, EVERY 3 WEEKS (MOST RECENT DOSE PRIOR TO THE EVENT: 29/NOV/2018, 04/JAN/2019)
     Dates: start: 20181102
  3. PROPRANOLOL [Concomitant]
     Active Substance: PROPRANOLOL HYDROCHLORIDE
     Indication: Tremor
     Dosage: ONGOING = CHECKED
     Dates: start: 20201002
  4. ATARAX [Concomitant]
     Active Substance: HYDROXYZINE HYDROCHLORIDE
     Indication: Neurodermatitis
     Dosage: ONGOING = CHECKED
     Dates: start: 20200310
  5. ENALAPRIL MALEATE [Concomitant]
     Active Substance: ENALAPRIL MALEATE
     Dosage: ONGOING = CHECKED
     Dates: start: 20120615
  6. AERIUS (DESLORATADINE) [Concomitant]
     Active Substance: DESLORATADINE
     Indication: Neurodermatitis
     Dosage: ONGOING = CHECKED
     Dates: start: 20200328
  7. CLOBEDERM [Concomitant]
     Indication: Neurodermatitis
     Dosage: ONGOING = CHECKED
     Dates: start: 20200328

REACTIONS (2)
  - Femoral neck fracture [Recovered/Resolved with Sequelae]
  - Overdose [Unknown]

NARRATIVE: CASE EVENT DATE: 20201227
